FAERS Safety Report 5214382-4 (Version None)
Quarter: 2007Q1

REPORT INFORMATION
  Report Type: 
  Country: None (occurrence: None)
  Receive Date: 20070122
  Receipt Date: 20070117
  Transmission Date: 20070707
  Serious: Yes (Hospitalization)
  Sender: FDA-Public Use
  Company Number: FR-GLAXOSMITHKLINE-B0454805A

PATIENT
  Age: 96 Year
  Sex: Female

DRUGS (12)
  1. AUGMENTIN '125' [Suspect]
     Indication: URINARY TRACT INFECTION
     Route: 048
     Dates: start: 20061110, end: 20061118
  2. VITAMIN B-12 [Concomitant]
     Route: 065
     Dates: start: 20061101
  3. ZOLPIDEM TARTRATE [Concomitant]
     Route: 065
     Dates: start: 20061101
  4. HEMIGOXINE [Concomitant]
     Dosage: 1TAB PER DAY
     Route: 048
  5. LASILIX 20 [Concomitant]
     Dosage: 20MG PER DAY
     Route: 048
  6. PAROXETINE HCL [Concomitant]
     Dosage: 20MG PER DAY
     Route: 048
  7. SERC-8 [Concomitant]
     Dosage: 16MG PER DAY
     Route: 048
  8. HYDERGINE [Concomitant]
     Dosage: 4.5MG PER DAY
     Route: 048
  9. CALCIDOSE [Concomitant]
     Dosage: 1TAB PER DAY
     Route: 048
  10. DISCOTRINE PATCH [Concomitant]
     Dosage: 5MG PER DAY
     Route: 062
  11. OLMETEC [Concomitant]
     Dosage: 20MG PER DAY
     Route: 048
  12. UNKNOWN DRUG [Concomitant]
     Dosage: 4UNIT PER DAY
     Route: 065

REACTIONS (10)
  - ACUTE GENERALISED EXANTHEMATOUS PUSTULOSIS [None]
  - BLOOD ALKALINE PHOSPHATASE INCREASED [None]
  - CARDIAC FAILURE [None]
  - DERMATITIS EXFOLIATIVE [None]
  - DISORIENTATION [None]
  - ERYTHEMA [None]
  - HYPERKALAEMIA [None]
  - RASH PUSTULAR [None]
  - RENAL FAILURE ACUTE [None]
  - SKIN EXFOLIATION [None]
